FAERS Safety Report 11333585 (Version 1)
Quarter: 2015Q3

REPORT INFORMATION
  Report Type: Spontaneous
  Country: US (occurrence: US)
  Receive Date: 20150803
  Receipt Date: 20150803
  Transmission Date: 20151125
  Serious: No
  Sender: FDA-Public Use
  Company Number: US-ELI_LILLY_AND_COMPANY-US200706006070

PATIENT
  Age: 41 Year
  Sex: Female

DRUGS (1)
  1. ZYPREXA [Suspect]
     Active Substance: OLANZAPINE
     Indication: SCHIZOPHRENIA
     Dosage: UNK, UNK
     Dates: start: 2000, end: 200605

REACTIONS (6)
  - Emotional distress [Unknown]
  - Anxiety [Unknown]
  - Hyperglycaemia [Not Recovered/Not Resolved]
  - Diabetes mellitus [Not Recovered/Not Resolved]
  - Fear [Unknown]
  - Pain [Unknown]

NARRATIVE: CASE EVENT DATE: 20060512
